FAERS Safety Report 8172065-5 (Version None)
Quarter: 2012Q1

REPORT INFORMATION
  Report Type: 
  Country: None (occurrence: None)
  Receive Date: 20120228
  Receipt Date: 20120215
  Transmission Date: 20120608
  Serious: Yes (Other)
  Sender: FDA-Public Use
  Company Number: GB-MYLANLABS-2012S1003361

PATIENT
  Sex: Female

DRUGS (1)
  1. CLOMIPRAMINE HCL [Suspect]
     Indication: OBSESSIVE-COMPULSIVE DISORDER
     Dosage: 1 X 25 MG QD, 1 X 50 MG QD
     Route: 048

REACTIONS (2)
  - HAEMATEMESIS [None]
  - VAGINAL HAEMORRHAGE [None]
